FAERS Safety Report 14944068 (Version 1)
Quarter: 2018Q2

REPORT INFORMATION
  Report Type: Spontaneous
  Country: GB (occurrence: GB)
  Receive Date: 20180528
  Receipt Date: 20180528
  Transmission Date: 20180711
  Serious: Yes (Other)
  Sender: FDA-Public Use
  Company Number: GB-AXELLIA-001688

PATIENT
  Age: 4 Month

DRUGS (1)
  1. VANCOMYCIN [Suspect]
     Active Substance: VANCOMYCIN
     Indication: PRODUCT USED FOR UNKNOWN INDICATION
     Dosage: 8TH DOSE. INFUSED OVER AN HOUR.
     Route: 041

REACTIONS (2)
  - Anaphylactoid reaction [Recovered/Resolved]
  - Red man syndrome [Recovered/Resolved]
